FAERS Safety Report 21699166 (Version 8)
Quarter: 2025Q1

REPORT INFORMATION
  Report Type: Other
  Country: IT (occurrence: IT)
  Receive Date: 20221208
  Receipt Date: 20250116
  Transmission Date: 20250409
  Serious: Yes (Hospitalization, Disabling, Other)
  Sender: BIOCON
  Company Number: IT-CELLTRION HEALTHCARE HUNGARY KFT-2022IT014989

PATIENT

DRUGS (15)
  1. TRASTUZUMAB [Suspect]
     Active Substance: TRASTUZUMAB
     Indication: Extramammary Paget^s disease
     Route: 042
     Dates: start: 201601, end: 2019
  2. TRASTUZUMAB [Suspect]
     Active Substance: TRASTUZUMAB
     Dosage: 6 MILLIGRAM/KILOGRAM, Q3W. (MAINTENANCE DOSE EVERY 3 WEEKS; CONTINUED AS MAINTENANCE TREATMENT FOR 3
     Route: 042
     Dates: start: 201910
  3. ADALIMUMAB [Suspect]
     Active Substance: ADALIMUMAB
     Indication: Psoriasis
     Route: 058
  4. BICALUTAMIDE [Suspect]
     Active Substance: BICALUTAMIDE
     Indication: Extramammary Paget^s disease
     Dosage: 50 MG, QD, 50 MILLIGRAM, DAILY
     Route: 048
     Dates: start: 201906, end: 201908
  5. CAPECITABINE [Suspect]
     Active Substance: CAPECITABINE
     Indication: Extramammary Paget^s disease
     Dosage: 1500 MILLIGRAM, QD, ~METRONOMIC
     Route: 065
     Dates: start: 201512
  6. PACLITAXEL [Suspect]
     Active Substance: PACLITAXEL
     Indication: Extramammary Paget^s disease
     Dosage: 150 MILLIGRAM/SQ. METER, Q3W,150 MG/M2 EVERY 3 WEEKS
     Route: 065
     Dates: end: 201605
  7. CARBOPLATIN [Suspect]
     Active Substance: CARBOPLATIN
     Indication: Extramammary Paget^s disease
     Dosage: UNK, Q3W, AREA UNDER THE CURVE(AUC)OF5EVERY3 W
     Route: 065
     Dates: start: 201601, end: 201605
  8. GEMCITABINE [Suspect]
     Active Substance: GEMCITABINE
     Indication: Extramammary Paget^s disease
     Dosage: 800 MG, Q3W (DAY 1, DAY 8 EVERY 3 WEEKS)
     Route: 065
     Dates: start: 201908
  9. GEMCITABINE [Suspect]
     Active Substance: GEMCITABINE
     Dosage: 800 MG, Q3W
     Route: 065
     Dates: start: 201910
  10. LEUPROLIDE ACETATE [Suspect]
     Active Substance: LEUPROLIDE ACETATE
     Indication: Extramammary Paget^s disease
     Route: 030
     Dates: start: 201906, end: 201908
  11. VINORELBINE [Suspect]
     Active Substance: VINORELBINE TARTRATE
     Indication: Extramammary Paget^s disease
     Route: 048
     Dates: start: 201808
  12. VINORELBINE [Suspect]
     Active Substance: VINORELBINE TARTRATE
     Route: 048
     Dates: start: 201901, end: 201905
  13. VINORELBINE [Suspect]
     Active Substance: VINORELBINE TARTRATE
     Route: 048
     Dates: end: 201905
  14. USTEKINUMAB [Suspect]
     Active Substance: USTEKINUMAB
     Indication: Psoriasis
     Route: 065
  15. CYCLOSPORINE [Suspect]
     Active Substance: CYCLOSPORINE
     Indication: Psoriasis
     Route: 048

REACTIONS (17)
  - Disease progression [Unknown]
  - Gait disturbance [Unknown]
  - Walking disability [Unknown]
  - Mobility decreased [Unknown]
  - Extramammary Paget^s disease [Unknown]
  - Depressed mood [Unknown]
  - Fatigue [Unknown]
  - Asthenia [Unknown]
  - Anaemia [Unknown]
  - Febrile neutropenia [Unknown]
  - Skin papilloma [Recovered/Resolved]
  - Drug intolerance [Unknown]
  - Sinusitis [Unknown]
  - Drug ineffective for unapproved indication [Unknown]
  - Off label use [Unknown]
  - Drug ineffective [Unknown]
  - Drug effective for unapproved indication [Unknown]

NARRATIVE: CASE EVENT DATE: 20180801
